FAERS Safety Report 8052228-X (Version None)
Quarter: 2012Q1

REPORT INFORMATION
  Report Type: 
  Country: None (occurrence: None)
  Receive Date: 20120111
  Receipt Date: 20120105
  Transmission Date: 20120608
  Serious: Yes (Hospitalization)
  Sender: FDA-Public Use
  Company Number: 2011SP045523

PATIENT
  Sex: Female

DRUGS (1)
  1. CERAZETTE (DESOGESTREL /00754001/) [Suspect]
     Indication: ENDOMETRIOSIS

REACTIONS (6)
  - CEREBRAL HAEMANGIOMA [None]
  - DISTURBANCE IN ATTENTION [None]
  - NAUSEA [None]
  - EPILEPSY [None]
  - DIZZINESS [None]
  - VERTIGO [None]
